FAERS Safety Report 8409281-0 (Version None)
Quarter: 2012Q2

REPORT INFORMATION
  Report Type: 
  Country: None (occurrence: None)
  Receive Date: 20120605
  Receipt Date: 20120530
  Transmission Date: 20120825
  Serious: Yes (Hospitalization, Other)
  Sender: FDA-Public Use
  Company Number: US-AMGEN-USASP2012029481

PATIENT
  Age: 80 Year
  Sex: Male

DRUGS (15)
  1. MINOXIDIL [Concomitant]
  2. GINKGO BILOBA [Concomitant]
  3. VITAMIN D [Concomitant]
  4. HYALURONIC ACID [Concomitant]
  5. PROLIA [Suspect]
  6. GLUCOSAMINE AND CHONDROITIN [Concomitant]
  7. AMLODIPINE [Concomitant]
  8. COENZYME Q10 [Concomitant]
  9. PANTOPRAZOLE [Concomitant]
     Dosage: UNK
  10. FUROSEMIDE [Concomitant]
  11. COREG [Concomitant]
  12. CALCIUM [Concomitant]
  13. VITAMIN C                          /00008001/ [Concomitant]
  14. PROLIA [Suspect]
     Indication: OSTEOPOROSIS
     Dosage: 60 MG, Q6MO
     Dates: start: 20110101
  15. WARFARIN SODIUM [Concomitant]

REACTIONS (12)
  - PULMONARY EMBOLISM [None]
  - GASTROINTESTINAL HAEMORRHAGE [None]
  - WEIGHT DECREASED [None]
  - VOMITING [None]
  - FLUID RETENTION [None]
  - MUSCLE SPASMS [None]
  - ABDOMINAL DISCOMFORT [None]
  - MUSCLE TWITCHING [None]
  - PYLORIC STENOSIS [None]
  - MALAISE [None]
  - DECREASED APPETITE [None]
  - HYPOCALCAEMIA [None]
